FAERS Safety Report 11495379 (Version 1)
Quarter: 2015Q3

REPORT INFORMATION
  Report Type: Spontaneous
  Country: US (occurrence: US)
  Receive Date: 20150911
  Receipt Date: 20150911
  Transmission Date: 20151125
  Serious: No
  Sender: FDA-Public Use
  Company Number: US-ROCHE-1039922

PATIENT
  Age: 45 Year
  Sex: Female

DRUGS (1)
  1. PEGASYS [Suspect]
     Active Substance: PEGINTERFERON ALFA-2A
     Indication: PRODUCT USED FOR UNKNOWN INDICATION
     Route: 065

REACTIONS (8)
  - Rash [Unknown]
  - Muscle spasms [Unknown]
  - White blood cell count decreased [Unknown]
  - Nausea [Unknown]
  - Dysgeusia [Unknown]
  - Stomatitis [Unknown]
  - Ill-defined disorder [Unknown]
  - Anaemia [Unknown]
